FAERS Safety Report 23631182 (Version 3)
Quarter: 2024Q4

REPORT INFORMATION
  Report Type: Spontaneous
  Country: ES (occurrence: ES)
  Receive Date: 20240314
  Receipt Date: 20241212
  Transmission Date: 20250115
  Serious: Yes (Hospitalization)
  Sender: RANBAXY
  Company Number: ES-AEMPS-1458447

PATIENT
  Age: 70 Year
  Sex: Male

DRUGS (7)
  1. HYDROCHLOROTHIAZIDE\RAMIPRIL [Suspect]
     Active Substance: HYDROCHLOROTHIAZIDE\RAMIPRIL
     Indication: Hypertension
     Dosage: 1.0 COMP C/24 H
     Route: 048
     Dates: start: 20230316, end: 20230608
  2. CLOPIDOGREL [Concomitant]
     Active Substance: CLOPIDOGREL BISULFATE
     Indication: Cerebrovascular disorder
     Dosage: 75.0 MG DE
     Route: 048
     Dates: start: 20221224
  3. ASPIRIN [Concomitant]
     Active Substance: ASPIRIN
     Indication: Myocardial ischaemia
     Dosage: 100.0 MG DE
     Route: 048
     Dates: start: 20161117
  4. ATORVASTATIN CALCIUM\EZETIMIBE [Concomitant]
     Active Substance: ATORVASTATIN CALCIUM\EZETIMIBE
     Indication: Type V hyperlipidaemia
     Dosage: 1.0 COMP C/24 H
     Route: 048
     Dates: start: 20230216
  5. ATENOLOL [Concomitant]
     Active Substance: ATENOLOL
     Indication: Hypertension
     Dosage: 50.0 MG C/12 H
     Route: 048
     Dates: start: 20151202
  6. ESCITALOPRAM [Concomitant]
     Active Substance: ESCITALOPRAM OXALATE
     Indication: Depression
     Dosage: 10.0 MG DE
     Route: 048
     Dates: start: 20230316
  7. OMEPRAZOLE [Concomitant]
     Active Substance: OMEPRAZOLE
     Indication: Myocardial ischaemia
     Dosage: 20.0 MG A-DE
     Route: 048
     Dates: start: 20161117

REACTIONS (1)
  - Chronic kidney disease [Recovered/Resolved]

NARRATIVE: CASE EVENT DATE: 20230608
